FAERS Safety Report 13182521 (Version 3)
Quarter: 2017Q1

REPORT INFORMATION
  Report Type: Spontaneous
  Country: US (occurrence: US)
  Receive Date: 20170202
  Receipt Date: 20170308
  Transmission Date: 20170428
  Serious: Yes (Congenital Anomaly, Other)
  Sender: FDA-Public Use
  Company Number: US-AMGEN-USASL2017013401

PATIENT
  Age: 0 Day

DRUGS (1)
  1. ENBREL [Suspect]
     Active Substance: ETANERCEPT
     Indication: EXPOSURE DURING PREGNANCY
     Dosage: 50 MG, 2 TIMES/WK
     Route: 064

REACTIONS (2)
  - Large for dates baby [Unknown]
  - Congenital hypothyroidism [Unknown]

NARRATIVE: CASE EVENT DATE: 20060426
